FAERS Safety Report 17139645 (Version 1)
Quarter: 2019Q4

REPORT INFORMATION
  Report Type: Spontaneous
  Country: DE (occurrence: DE)
  Receive Date: 20191211
  Receipt Date: 20191211
  Transmission Date: 20200122
  Serious: Yes (Life-Threatening, Hospitalization)
  Sender: FDA-Public Use
  Company Number: DE-AUROBINDO-AUR-APL-2019-104355

PATIENT
  Age: 40 Year
  Sex: Female
  Weight: 55 kg

DRUGS (4)
  1. WICK [Suspect]
     Active Substance: CAMPHOR
     Dosage: UNK (AT NIGHT, EMERGENCY MEDICATION FOR INFECTION, JUICE)
     Route: 048
  2. CODEINE [Concomitant]
     Active Substance: CODEINE
     Indication: PRODUCT USED FOR UNKNOWN INDICATION
     Dosage: 20 GTT DROPS IF NECESSARY
     Route: 048
  3. WICK [Suspect]
     Active Substance: CAMPHOR
     Indication: PRODUCT USED FOR UNKNOWN INDICATION
     Dosage: UNK (2X / D, REQUIRED MEDICATION FOR INFECTION, JUICE)
     Route: 048
  4. IBUPROFEN FILM-COATED TABLETS [Suspect]
     Active Substance: IBUPROFEN
     Indication: PRODUCT USED FOR UNKNOWN INDICATION
     Dosage: UNK (2X / D, ON DEMAND MEDICATION, TABLETS)
     Route: 048

REACTIONS (3)
  - Product monitoring error [Unknown]
  - Jaundice [Unknown]
  - Oedema peripheral [Unknown]
